FAERS Safety Report 8010343-0 (Version None)
Quarter: 2011Q4

REPORT INFORMATION
  Report Type: 
  Country: None (occurrence: None)
  Receive Date: 20111228
  Receipt Date: 20111220
  Transmission Date: 20120403
  Serious: Yes (Other)
  Sender: FDA-Public Use
  Company Number: KR-US-EMD SERONO, INC.-7071073

PATIENT
  Sex: Female

DRUGS (4)
  1. LORELIN [Concomitant]
     Indication: IN VITRO FERTILISATION
     Route: 058
     Dates: start: 20110302, end: 20110413
  2. PROGESTERONE [Concomitant]
     Indication: IN VITRO FERTILISATION
     Route: 030
     Dates: start: 20110413, end: 20110608
  3. GONAL-F [Suspect]
     Indication: IN VITRO FERTILISATION
     Dates: start: 20110331, end: 20110412
  4. OVIDREL [Concomitant]
     Indication: IN VITRO FERTILISATION
     Route: 058
     Dates: start: 20110413, end: 20110413

REACTIONS (2)
  - COMPLICATION OF PREGNANCY [None]
  - ABORTION INDUCED [None]
